FAERS Safety Report 23221021 (Version 2)
Quarter: 2024Q2

REPORT INFORMATION
  Report Type: Spontaneous
  Country: GB (occurrence: GB)
  Receive Date: 20231123
  Receipt Date: 20240530
  Transmission Date: 20240716
  Serious: Yes (Other)
  Sender: FDA-Public Use
  Company Number: GB-JNJFOC-20231136665

PATIENT
  Sex: Male

DRUGS (1)
  1. XYLOMETAZOLINE HYDROCHLORIDE [Suspect]
     Active Substance: XYLOMETAZOLINE HYDROCHLORIDE
     Indication: Nasal obstruction
     Route: 045

REACTIONS (3)
  - Drug dependence [Recovered/Resolved]
  - Rebound effect [Unknown]
  - Nasal obstruction [Unknown]
